FAERS Safety Report 12109165 (Version 1)
Quarter: 2016Q1

REPORT INFORMATION
  Report Type: Spontaneous
  Country: US (occurrence: None)
  Receive Date: 20160222
  Receipt Date: 20160222
  Transmission Date: 20160526
  Serious: No
  Sender: FDA-Public Use
  Company Number: None

PATIENT
  Age: 45 Year
  Sex: Male

DRUGS (3)
  1. NORCO [Suspect]
     Active Substance: ACETAMINOPHEN\HYDROCODONE BITARTRATE
  2. OXYCODONE [Suspect]
     Active Substance: OXYCODONE
     Indication: PAIN
  3. METHADONE [Suspect]
     Active Substance: METHADONE HYDROCHLORIDE

REACTIONS (3)
  - Mental disorder [None]
  - Headache [None]
  - Malaise [None]
